FAERS Safety Report 18134818 (Version 1)
Quarter: 2020Q3

REPORT INFORMATION
  Report Type: Spontaneous
  Country: US (occurrence: US)
  Receive Date: 20200810
  Receipt Date: 20200810
  Transmission Date: 20201103
  Serious: No
  Sender: FDA-Public Use
  Company Number: None

PATIENT
  Age: 18 Year
  Sex: Female
  Weight: 58.5 kg

DRUGS (3)
  1. NEXPLANON [Suspect]
     Active Substance: ETONOGESTREL
     Indication: CONTRACEPTION
     Dosage: ?          QUANTITY:1 IMPLANT;OTHER FREQUENCY:CONSTANT;?
     Route: 058
     Dates: start: 20190101, end: 20200810
  2. RHINOCORT [Concomitant]
     Active Substance: BUDESONIDE
  3. LEVOCETIRIZINE [Concomitant]
     Active Substance: LEVOCETIRIZINE

REACTIONS (3)
  - Mood swings [None]
  - Depression [None]
  - Menorrhagia [None]

NARRATIVE: CASE EVENT DATE: 20200610
